FAERS Safety Report 25683270 (Version 2)
Quarter: 2025Q3

REPORT INFORMATION
  Report Type: Spontaneous
  Country: EU (occurrence: EU)
  Receive Date: 20250814
  Receipt Date: 20250822
  Transmission Date: 20251021
  Serious: Yes (Death)
  Sender: MYLAN
  Company Number: None

PATIENT
  Age: 57 Year
  Sex: Male

DRUGS (4)
  1. TRAMADOL [Suspect]
     Active Substance: TRAMADOL
     Indication: Product used for unknown indication
  2. TRAMADOL [Suspect]
     Active Substance: TRAMADOL
     Route: 048
  3. TRAMADOL [Suspect]
     Active Substance: TRAMADOL
     Route: 048
  4. TRAMADOL [Suspect]
     Active Substance: TRAMADOL

REACTIONS (2)
  - Death [Fatal]
  - Toxicity to various agents [Fatal]

NARRATIVE: CASE EVENT DATE: 20230101
